FAERS Safety Report 20927910 (Version 1)
Quarter: 2022Q2

REPORT INFORMATION
  Report Type: Spontaneous
  Country: US (occurrence: US)
  Receive Date: 20220607
  Receipt Date: 20220607
  Transmission Date: 20220721
  Serious: No
  Sender: FDA-Public Use
  Company Number: US-Teikoku Pharma USA-TPU2022-00493

PATIENT
  Age: 87 Year
  Sex: Male
  Weight: 69.008 kg

DRUGS (1)
  1. LIDOCAINE PATCH [Suspect]
     Active Substance: LIDOCAINE
     Indication: Upper limb fracture
     Route: 061
     Dates: start: 20220511

REACTIONS (1)
  - Application site warmth [Unknown]

NARRATIVE: CASE EVENT DATE: 20220511
